FAERS Safety Report 25282658 (Version 1)
Quarter: 2025Q2

REPORT INFORMATION
  Report Type: Other
  Country: DE (occurrence: DE)
  Receive Date: 20250508
  Receipt Date: 20250508
  Transmission Date: 20250716
  Serious: Yes (Other)
  Sender: KARYOPHARM THERAPEUTICS
  Company Number: DE-STEMLINE THERAPEUTICS  INC-2025-STML-DE001582

PATIENT

DRUGS (3)
  1. SELINEXOR [Suspect]
     Active Substance: SELINEXOR
     Indication: Plasma cell myeloma
     Route: 048
  2. BORTEZOMIB [Suspect]
     Active Substance: BORTEZOMIB
     Indication: Plasma cell myeloma
     Route: 058
  3. DEXAMETHASONE [Concomitant]
     Active Substance: DEXAMETHASONE
     Indication: Plasma cell myeloma
     Route: 048

REACTIONS (1)
  - Neoplasm skin [Not Recovered/Not Resolved]

NARRATIVE: CASE EVENT DATE: 20250328
